FAERS Safety Report 22958042 (Version 2)
Quarter: 2024Q4

REPORT INFORMATION
  Report Type: Spontaneous
  Country: FR (occurrence: FR)
  Receive Date: 20230919
  Receipt Date: 20241220
  Transmission Date: 20250115
  Serious: Yes (Death, Hospitalization, Other)
  Sender: MYLAN
  Company Number: FR-SANDOZ-SDZ2023FR006069

PATIENT
  Age: 73 Year
  Sex: Female

DRUGS (2)
  1. POLYETHYLENE GLYCOLS [Interacting]
     Active Substance: POLYETHYLENE GLYCOLS
     Indication: Product used for unknown indication
     Dosage: 6 U QD
     Route: 045
  2. CARBOHYDRATES\FATTY ACIDS\MINERALS\PROTEIN\VITAMINS [Interacting]
     Active Substance: CARBOHYDRATES\FATTY ACIDS\MINERALS\PROTEIN\VITAMINS
     Indication: Product used for unknown indication
     Dosage: UNK (VIA NASO GASTRIC TUBE)
     Route: 045

REACTIONS (4)
  - Oesophageal perforation [Fatal]
  - Bezoar [Fatal]
  - Constipation [Fatal]
  - Drug interaction [Fatal]
